FAERS Safety Report 6415412-4 (Version None)
Quarter: 2009Q4

REPORT INFORMATION
  Report Type: 
  Country: None (occurrence: None)
  Receive Date: 20091022
  Receipt Date: 20091007
  Transmission Date: 20100525
  Serious: Yes (Death)
  Sender: FDA-Public Use
  Company Number: 2009002833

PATIENT
  Age: 67 Year
  Sex: Male
  Weight: 67 kg

DRUGS (10)
  1. ERLOTINIB HYDROCHLORIDE [Suspect]
     Indication: NON-SMALL CELL LUNG CANCER
     Dosage: (150 MG,QD), ORAL
     Route: 048
     Dates: start: 20090115, end: 20090101
  2. SUNITINIB MALATE/PLACEBO [Suspect]
     Indication: NON-SMALL CELL LUNG CANCER
     Dosage: (37.5 MG,QD), ORAL
     Route: 048
     Dates: start: 20090115, end: 20090101
  3. METOPROLOL (METOPROLOL) [Concomitant]
  4. LISINOPRIL [Concomitant]
  5. SPIRONOLACTONE [Concomitant]
  6. ASPIRIN [Concomitant]
  7. SIMVASTATIN [Concomitant]
  8. DEXAMETHASONE TAB [Concomitant]
  9. NITRAZEPAM [Concomitant]
  10. OMEPRAZOLE [Concomitant]

REACTIONS (1)
  - SUDDEN DEATH [None]
